FAERS Safety Report 5927356-2 (Version None)
Quarter: 2008Q4

REPORT INFORMATION
  Report Type: 
  Country: None (occurrence: None)
  Receive Date: 20081021
  Receipt Date: 20081013
  Transmission Date: 20090506
  Serious: Yes (Death)
  Sender: FDA-Public Use
  Company Number: 2008AL010608

PATIENT
  Age: 3 Month
  Sex: Male

DRUGS (1)
  1. TRIAMCINOLONE ACETONIDE [Suspect]
     Indication: RASH
     Dosage: Q6H; TOP
     Route: 061
     Dates: start: 20080602

REACTIONS (2)
  - ASPIRATION [None]
  - GASTRIC DISORDER [None]
